FAERS Safety Report 19603782 (Version 2)
Quarter: 2021Q3

REPORT INFORMATION
  Report Type: Spontaneous
  Country: US (occurrence: US)
  Receive Date: 20210723
  Receipt Date: 20210812
  Transmission Date: 20211014
  Serious: No
  Sender: FDA-Public Use
  Company Number: US-TEVA-2021-US-1934924

PATIENT
  Age: 60 Year
  Sex: Female

DRUGS (2)
  1. CINQAIR [Suspect]
     Active Substance: RESLIZUMAB
     Dosage: STRENGTH: 100 MG / 10 ML
     Route: 042
  2. CINQAIR [Suspect]
     Active Substance: RESLIZUMAB
     Dosage: STRENGTH: 100 MG / 10 ML
     Route: 042
     Dates: start: 20210717

REACTIONS (2)
  - Asthma [Recovered/Resolved]
  - Dyspnoea [Recovered/Resolved]

NARRATIVE: CASE EVENT DATE: 20210711
